FAERS Safety Report 13532944 (Version 2)
Quarter: 2017Q2

REPORT INFORMATION
  Report Type: Spontaneous
  Country: TW (occurrence: TW)
  Receive Date: 20170510
  Receipt Date: 20170605
  Transmission Date: 20170830
  Serious: Yes (Hospitalization, Other)
  Sender: FDA-Public Use
  Company Number: TW-PFIZER INC-2017201581

PATIENT
  Age: 41 Year
  Sex: Female

DRUGS (6)
  1. EPIRUBICIN HCL [Suspect]
     Active Substance: EPIRUBICIN HYDROCHLORIDE
     Indication: OVARIAN ENDOMETRIOID CARCINOMA
  2. CYCLOPHOSPHAMIDE. [Suspect]
     Active Substance: CYCLOPHOSPHAMIDE
     Indication: ENDOMETRIAL ADENOCARCINOMA
     Dosage: UNK, CYCLIC (SIX-CYCLE ADJUVANT CHEMOTHERAPY)
  3. CISPLATIN. [Suspect]
     Active Substance: CISPLATIN
     Indication: ENDOMETRIAL ADENOCARCINOMA
     Dosage: UNK, CYCLIC (SIX-CYCLE ADJUVANT CHEMOTHERAPY)
  4. EPIRUBICIN HCL [Suspect]
     Active Substance: EPIRUBICIN HYDROCHLORIDE
     Indication: ENDOMETRIAL ADENOCARCINOMA
     Dosage: UNK, CYCLIC (SIX-CYCLE ADJUVANT CHEMOTHERAPY)
  5. CISPLATIN. [Suspect]
     Active Substance: CISPLATIN
     Indication: OVARIAN ENDOMETRIOID CARCINOMA
  6. CYCLOPHOSPHAMIDE. [Suspect]
     Active Substance: CYCLOPHOSPHAMIDE
     Indication: OVARIAN ENDOMETRIOID CARCINOMA

REACTIONS (3)
  - Wound evisceration [Recovered/Resolved]
  - Wound dehiscence [Recovered/Resolved]
  - Vaginal perforation [Recovered/Resolved]
